FAERS Safety Report 10811739 (Version 1)
Quarter: 2015Q1

REPORT INFORMATION
  Report Type: Report from Study
  Country: US (occurrence: US)
  Receive Date: 20150217
  Receipt Date: 20150217
  Transmission Date: 20150721
  Serious: No
  Sender: FDA-Public Use
  Company Number: US-ABBVIE-14K-163-1209634-00

PATIENT
  Age: 44 Year
  Sex: Male

DRUGS (4)
  1. HUMIRA [Suspect]
     Active Substance: ADALIMUMAB
     Indication: CROHN^S DISEASE
     Dosage: 4 40MG INJECTIONS
     Dates: start: 20140209, end: 20140209
  2. HUMIRA [Suspect]
     Active Substance: ADALIMUMAB
     Dosage: 2 40MG INJECTIONS
     Dates: start: 20140228, end: 20140228
  3. PENTASA [Concomitant]
     Active Substance: MESALAMINE
     Indication: PRODUCT USED FOR UNKNOWN INDICATION
  4. HUMIRA [Suspect]
     Active Substance: ADALIMUMAB

REACTIONS (6)
  - Faeces discoloured [Not Recovered/Not Resolved]
  - Abdominal pain [Not Recovered/Not Resolved]
  - Fatigue [Not Recovered/Not Resolved]
  - Pyrexia [Recovering/Resolving]
  - Bladder pain [Recovering/Resolving]
  - Bladder irritation [Not Recovered/Not Resolved]

NARRATIVE: CASE EVENT DATE: 20140216
